FAERS Safety Report 5392109-3 (Version None)
Quarter: 2007Q3

REPORT INFORMATION
  Report Type: 
  Country: None (occurrence: None)
  Receive Date: 20070717
  Receipt Date: 20070717
  Transmission Date: 20080115
  Serious: Yes (Other)
  Sender: FDA-Public Use
  Company Number: None

PATIENT
  Sex: Male

DRUGS (2)
  1. FENOLDOPAM MESYLATE [Suspect]
     Indication: GLOMERULAR FILTRATION RATE DECREASED
     Dates: start: 20070611, end: 20070611
  2. FENOLDOPAM MESYLATE [Suspect]
     Indication: PERIPHERAL VASCULAR DISORDER
     Dates: start: 20070611, end: 20070611

REACTIONS (2)
  - DEEP VEIN THROMBOSIS [None]
  - POST PROCEDURAL COMPLICATION [None]
